FAERS Safety Report 9349542 (Version 2)
Quarter: 2013Q3

REPORT INFORMATION
  Report Type: Report from Study
  Country: NL (occurrence: NL)
  Receive Date: 20130614
  Receipt Date: 20130815
  Transmission Date: 20140515
  Serious: Yes (Hospitalization)
  Sender: FDA-Public Use
  Company Number: NL-GLAXOSMITHKLINE-B0888865B

PATIENT
  Age: 65 Year
  Sex: 0
  Weight: 94 kg

DRUGS (3)
  1. PAZOPANIB [Suspect]
     Indication: NEOPLASM MALIGNANT
     Dosage: 400MG PER DAY
     Route: 048
     Dates: start: 20130110, end: 20130522
  2. PACLITAXEL [Suspect]
     Indication: NEOPLASM MALIGNANT
     Dosage: 60MG WEEKLY
     Route: 042
     Dates: start: 20130102, end: 20130522
  3. CARBOPLATIN [Suspect]
     Indication: NEOPLASM MALIGNANT
     Dosage: 220MG WEEKLY
     Route: 042
     Dates: start: 20130102, end: 20130522

REACTIONS (2)
  - Fatigue [Recovered/Resolved with Sequelae]
  - Pulmonary embolism [Recovered/Resolved]
